FAERS Safety Report 6584167-5 (Version None)
Quarter: 2010Q1

REPORT INFORMATION
  Report Type: 
  Country: None (occurrence: None)
  Receive Date: 20100216
  Receipt Date: 20100119
  Transmission Date: 20100710
  Serious: No
  Sender: FDA-Public Use
  Company Number: US-ABBOTT-10P-163-0620312-00

PATIENT
  Sex: Female
  Weight: 107.6 kg

DRUGS (8)
  1. SIMCOR [Suspect]
     Indication: DRUG USE FOR UNKNOWN INDICATION
     Dosage: 1000/20MG AT BEDTIME
     Route: 048
     Dates: start: 20100115
  2. BENADRYL [Concomitant]
     Indication: DRUG USE FOR UNKNOWN INDICATION
  3. ASPIRIN [Concomitant]
     Indication: DRUG USE FOR UNKNOWN INDICATION
  4. ZETIA [Concomitant]
     Indication: DRUG USE FOR UNKNOWN INDICATION
  5. LOVAZA [Concomitant]
     Indication: DRUG USE FOR UNKNOWN INDICATION
  6. CENTRUM HEART VITAMIN [Concomitant]
     Indication: DRUG USE FOR UNKNOWN INDICATION
  7. CALTRATE [Concomitant]
     Indication: DRUG USE FOR UNKNOWN INDICATION
  8. BENICAR HCT [Concomitant]
     Indication: DRUG USE FOR UNKNOWN INDICATION

REACTIONS (3)
  - FEELING HOT [None]
  - MIDDLE INSOMNIA [None]
  - PRURITUS [None]
